FAERS Safety Report 4932219-5 (Version None)
Quarter: 2006Q1

REPORT INFORMATION
  Report Type: 
  Country: None (occurrence: None)
  Receive Date: 20060303
  Receipt Date: 20060221
  Transmission Date: 20060701
  Serious: Yes (Hospitalization)
  Sender: FDA-Public Use
  Company Number: 2006UW02895

PATIENT
  Age: 62 Year
  Sex: Female
  Weight: 63.1 kg

DRUGS (11)
  1. ATENOLOL [Suspect]
     Route: 048
     Dates: start: 20050727
  2. HEPARIN [Suspect]
     Dates: start: 20050727, end: 20050727
  3. HEPARIN [Suspect]
     Route: 042
     Dates: start: 20050727, end: 20050729
  4. PLAVIX [Concomitant]
  5. NPH INSULIN [Concomitant]
  6. ASPIRIN [Concomitant]
  7. ISOSORBIDE [Concomitant]
  8. LISINOPRIL [Concomitant]
  9. MEVACOR [Concomitant]
  10. GLIPIZIDE [Concomitant]
  11. NITROGLYCERIN [Concomitant]

REACTIONS (7)
  - ANAEMIA [None]
  - ANGINA UNSTABLE [None]
  - BLOOD CREATININE INCREASED [None]
  - BLOOD POTASSIUM INCREASED [None]
  - ELECTROCARDIOGRAM T WAVE ABNORMAL [None]
  - NAUSEA [None]
  - VOMITING [None]
